FAERS Safety Report 17150250 (Version 2)
Quarter: 2020Q1

REPORT INFORMATION
  Report Type: Spontaneous
  Country: US (occurrence: US)
  Receive Date: 20191213
  Receipt Date: 20200123
  Transmission Date: 20200409
  Serious: No
  Sender: FDA-Public Use
  Company Number: US-009507513-1911USA006519

PATIENT
  Age: 30 Year
  Sex: Female
  Weight: 78.91 kg

DRUGS (1)
  1. NEXPLANON [Suspect]
     Active Substance: ETONOGESTREL
     Indication: CONTRACEPTION
     Dosage: FREQUENCY REPORTED AS 2 YEARS
     Route: 059
     Dates: start: 2017

REACTIONS (5)
  - Complication of device removal [Unknown]
  - Complication of device removal [Unknown]
  - Weight increased [Unknown]
  - Complication associated with device [Unknown]
  - Device deployment issue [Unknown]

NARRATIVE: CASE EVENT DATE: 2017
